FAERS Safety Report 17436829 (Version 4)
Quarter: 2024Q4

REPORT INFORMATION
  Report Type: Report from Study
  Country: US (occurrence: US)
  Receive Date: 20200219
  Receipt Date: 20241015
  Transmission Date: 20250114
  Serious: No
  Sender: TAKEDA
  Company Number: US-SHIRE-US202006416

PATIENT
  Age: 13 Year
  Sex: Male

DRUGS (1)
  1. IDURSULFASE [Suspect]
     Active Substance: IDURSULFASE
     Indication: Mucopolysaccharidosis II
     Dosage: UNK UNK, 1/WEEK
     Route: 042
     Dates: start: 20110607

REACTIONS (4)
  - Exposure to SARS-CoV-2 [Recovering/Resolving]
  - Product use issue [Recovering/Resolving]
  - Insurance issue [Recovering/Resolving]
  - Hypersensitivity [Recovering/Resolving]

NARRATIVE: CASE EVENT DATE: 20241002
